FAERS Safety Report 4566454-5 (Version None)
Quarter: 2005Q1

REPORT INFORMATION
  Report Type: 
  Country: None (occurrence: None)
  Receive Date: 20050126
  Receipt Date: 20050126
  Transmission Date: 20050727
  Serious: Yes (Hospitalization)
  Sender: FDA-Public Use
  Company Number: None

PATIENT
  Age: 73 Year
  Sex: Male
  Weight: 78.4723 kg

DRUGS (4)
  1. CETUXIMAB   250MG/M2 [Suspect]
     Indication: OESOPHAGEAL CARCINOMA
     Dosage: 750 MG  X1  INTRAVENOUS
     Route: 042
     Dates: start: 20041221, end: 20041221
  2. TAXOL [Suspect]
     Indication: OESOPHAGEAL CARCINOMA
     Dosage: 95MG  X1  INTRAVENOUS
     Route: 042
     Dates: start: 20041220, end: 20041221
  3. CARBOPLATIN [Concomitant]
  4. RADIATION [Concomitant]

REACTIONS (5)
  - CHEST PAIN [None]
  - ELECTROCARDIOGRAM ABNORMAL [None]
  - NAUSEA [None]
  - NECK PAIN [None]
  - VOMITING [None]
